FAERS Safety Report 7707524 (Version 3)
Quarter: 2013Q3

REPORT INFORMATION
  Report Type: Spontaneous
  Country: US (occurrence: US)
  Receive Date: 20101214
  Receipt Date: 20130703
  Transmission Date: 20140515
  Serious: No
  Sender: FDA-Public Use
  Company Number: US-ASTRAZENECA-2010SE01422

PATIENT
  Age: 74 Year
  Sex: Female
  Weight: 52.6 kg

DRUGS (14)
  1. CRESTOR [Suspect]
     Indication: HYPERCHOLESTEROLAEMIA
     Route: 048
     Dates: start: 2009
  2. CRESTOR [Suspect]
     Indication: HYPERCHOLESTEROLAEMIA
     Route: 048
     Dates: start: 2009
  3. CRESTOR [Suspect]
     Indication: STENT PLACEMENT
     Route: 048
     Dates: start: 2009
  4. DIURETIC [Concomitant]
     Indication: BLOOD PRESSURE
  5. WATER PILL [Concomitant]
     Indication: HYPERTENSION
  6. HCTZ [Concomitant]
     Indication: HYPERTENSION
  7. VIT D [Concomitant]
     Indication: OSTEOPOROSIS PROPHYLAXIS
  8. VIT D [Concomitant]
     Indication: VITAMIN D DEFICIENCY
  9. BABY ASPIRIN [Concomitant]
     Indication: PROPHYLAXIS
  10. MVI [Concomitant]
     Indication: PROPHYLAXIS
  11. CALCIUM [Concomitant]
     Indication: OSTEOPOROSIS PROPHYLAXIS
  12. CALCIUM [Concomitant]
     Indication: PROPHYLAXIS
  13. Q 10 [Concomitant]
     Indication: PROPHYLAXIS
  14. PENICILLIN [Concomitant]

REACTIONS (7)
  - Paraesthesia [Not Recovered/Not Resolved]
  - Alopecia [Unknown]
  - Gastrooesophageal reflux disease [Not Recovered/Not Resolved]
  - Flatulence [Not Recovered/Not Resolved]
  - Vitamin D decreased [Recovered/Resolved]
  - Oedema peripheral [Not Recovered/Not Resolved]
  - Arthritis [Not Recovered/Not Resolved]
